FAERS Safety Report 4700707-2 (Version None)
Quarter: 2005Q2

REPORT INFORMATION
  Report Type: 
  Country: None (occurrence: None)
  Receive Date: 20050627
  Receipt Date: 20050613
  Transmission Date: 20051028
  Serious: Yes (Other)
  Sender: FDA-Public Use
  Company Number: MK200506-0137-1

PATIENT
  Age: 50 Year
  Sex: Female

DRUGS (3)
  1. METHADOSE [Suspect]
     Indication: PAIN
     Dosage: 60-240 MG, PER 24 H, PO
     Route: 048
  2. OXYCOCET [Concomitant]
  3. GABAPENTIN [Concomitant]

REACTIONS (3)
  - ELECTROCARDIOGRAM QT CORRECTED INTERVAL PROLONGED [None]
  - INADEQUATE ANALGESIA [None]
  - POST PROCEDURAL COMPLICATION [None]
